FAERS Safety Report 9076664 (Version 2)
Quarter: 2013Q2

REPORT INFORMATION
  Report Type: Report from Study
  Country: MX (occurrence: MX)
  Receive Date: 20130130
  Receipt Date: 20130523
  Transmission Date: 20140414
  Serious: Yes (Other)
  Sender: FDA-Public Use
  Company Number: PHHY2013MX008186

PATIENT
  Sex: 0

DRUGS (10)
  1. DIOVAN [Suspect]
     Indication: HYPERTENSION
     Dosage: 2 DF, (80 MG) DAILY
     Route: 048
     Dates: start: 200801
  2. DIOVAN [Suspect]
     Dosage: 1 DF, (80 MG) DAILY
     Route: 048
     Dates: start: 2008
  3. BIPERIDEN [Concomitant]
     Indication: PARKINSON^S DISEASE
     Dosage: 0.5 DF, DAILY
     Dates: start: 1998
  4. BIPERIDEN [Concomitant]
     Dosage: 1 DF DAILY
     Dates: start: 200301
  5. PRIMIDONE [Concomitant]
     Indication: PARKINSON^S DISEASE
     Dosage: 0.5 DF, DAILY
     Dates: start: 1998
  6. PRIMIDONE [Concomitant]
     Dosage: 1 DF DAILY
     Dates: start: 200301
  7. SALBUTAMOL [Concomitant]
     Dosage: 2 DF DAILY
     Dates: start: 200701
  8. COMBIVENT [Concomitant]
     Dosage: 2 DF DAILY
     Dates: start: 200701
  9. MIACALCIC [Concomitant]
     Dosage: 2 DF, UNK
     Dates: start: 201210
  10. ASPIRIN PROTECT [Concomitant]
     Dosage: 1 DF, DAILY
     Route: 048
     Dates: start: 201210

REACTIONS (3)
  - Hip fracture [Recovering/Resolving]
  - Urinary tract infection [Recovered/Resolved]
  - Influenza [Recovered/Resolved]
